FAERS Safety Report 20814045 (Version 1)
Quarter: 2022Q2

REPORT INFORMATION
  Report Type: Spontaneous
  Country: US (occurrence: US)
  Receive Date: 20220511
  Receipt Date: 20220511
  Transmission Date: 20220721
  Serious: Yes (Other)
  Sender: FDA-Public Use
  Company Number: US-GSKCCFUS-Case-01369501_AE-79181

PATIENT
  Sex: Female

DRUGS (1)
  1. LAMICTAL [Suspect]
     Active Substance: LAMOTRIGINE
     Indication: Product used for unknown indication
     Dosage: UNK, FOR ABOUT A YEAR AND 8 MONTHS
     Dates: start: 20210505

REACTIONS (3)
  - Syncope [Not Recovered/Not Resolved]
  - Arrhythmia [Not Recovered/Not Resolved]
  - Sinus arrest [Not Recovered/Not Resolved]
